FAERS Safety Report 11107100 (Version 1)
Quarter: 2015Q2

REPORT INFORMATION
  Report Type: Spontaneous
  Country: US (occurrence: US)
  Receive Date: 20150512
  Receipt Date: 20150512
  Transmission Date: 20150821
  Serious: No
  Sender: FDA-Public Use
  Company Number: US-BAUSCH-BL-2014-002759

PATIENT
  Age: 81 Year
  Sex: Male

DRUGS (5)
  1. LATANOPROST OPHTHALMIC SOLUTION 0.005% [Suspect]
     Active Substance: LATANOPROST
     Indication: PRODUCT USED FOR UNKNOWN INDICATION
  2. FINASTERIDE. [Interacting]
     Active Substance: FINASTERIDE
     Indication: SEASONAL ALLERGY
  3. LISINOPRIL. [Interacting]
     Active Substance: LISINOPRIL
     Indication: HYPERTENSION
  4. FLUTICASONE PROPIONATE. [Interacting]
     Active Substance: FLUTICASONE PROPIONATE
     Indication: SEASONAL ALLERGY
  5. COMBIGAN [Interacting]
     Active Substance: BRIMONIDINE TARTRATE\TIMOLOL MALEATE
     Indication: GLAUCOMA
     Route: 047

REACTIONS (3)
  - Lethargy [Recovered/Resolved]
  - Blood pressure fluctuation [Recovered/Resolved]
  - Dizziness [Recovered/Resolved]
